FAERS Safety Report 4346096-7 (Version None)
Quarter: 2004Q2

REPORT INFORMATION
  Report Type: 
  Country: None (occurrence: None)
  Receive Date: 20040421
  Receipt Date: 20040412
  Transmission Date: 20050107
  Serious: Yes (Hospitalization, Other)
  Sender: FDA-Public Use
  Company Number: 2004203842US

PATIENT
  Age: 58 Year
  Sex: Male

DRUGS (1)
  1. DETROL LA [Suspect]
     Dates: start: 20040302, end: 20040318

REACTIONS (3)
  - CONSTIPATION [None]
  - HAEMATOCHEZIA [None]
  - MYOCARDIAL INFARCTION [None]
